FAERS Safety Report 21075095 (Version 3)
Quarter: 2022Q3

REPORT INFORMATION
  Report Type: Spontaneous
  Country: US (occurrence: US)
  Receive Date: 20220713
  Receipt Date: 20220829
  Transmission Date: 20221027
  Serious: Yes (Hospitalization, Other)
  Sender: FDA-Public Use
  Company Number: US-BRISTOL-MYERS SQUIBB COMPANY-2022-065716

PATIENT
  Age: 73 Year
  Sex: Male

DRUGS (3)
  1. REVLIMID [Suspect]
     Active Substance: LENALIDOMIDE
     Indication: Plasma cell myeloma
     Dosage: 1 CAPSULE (15 MILLIGRAM) DAILY FOR 14 DAYS ON THEN 14 DAYS OFF
     Route: 048
     Dates: start: 20220630
  2. REVLIMID [Suspect]
     Active Substance: LENALIDOMIDE
     Dosage: TAKE 1 CAPSULE BY MOUTH DAILY FOR 15 DAYS ON, THEN 15 DAYS OFF. REPEAT
     Route: 048
  3. REVLIMID [Suspect]
     Active Substance: LENALIDOMIDE
     Dosage: CAPSULE BY MOUTH EVERY DAY FOR 15 DAYS ON THEN 15 DAYS OFF. REPEAT
     Route: 048

REACTIONS (4)
  - Deep vein thrombosis [Unknown]
  - Pulmonary thrombosis [Unknown]
  - Back pain [Unknown]
  - Off label use [Unknown]
